FAERS Safety Report 5034777-1 (Version None)
Quarter: 2006Q2

REPORT INFORMATION
  Report Type: 
  Country: None (occurrence: None)
  Receive Date: 20060509
  Receipt Date: 20060201
  Transmission Date: 20061013
  Serious: Yes (Hospitalization, Other)
  Sender: FDA-Public Use
  Company Number: US200602000489

PATIENT
  Age: 80 Year
  Sex: Female

DRUGS (5)
  1. PROZAC WEEKLY [Suspect]
     Indication: DEPRESSION
     Dosage: 90 MG, WEEKLY (1/W)
  2. GLUCOTROL [Concomitant]
  3. DIOVAN [Concomitant]
  4. PLAVIX [Concomitant]
  5. ASA (ASPIRIN (ACETYLSALICYLIC ACID) [Concomitant]

REACTIONS (2)
  - CEREBROVASCULAR ACCIDENT [None]
  - DRUG INEFFECTIVE [None]
